FAERS Safety Report 7775429-4 (Version None)
Quarter: 2011Q3

REPORT INFORMATION
  Report Type: 
  Country: None (occurrence: None)
  Receive Date: 20110923
  Receipt Date: 20110919
  Transmission Date: 20111222
  Serious: Yes (Hospitalization, Other)
  Sender: FDA-Public Use
  Company Number: PHHY2011US68053

PATIENT
  Sex: Female
  Weight: 52 kg

DRUGS (2)
  1. EXJADE [Suspect]
     Indication: MYELODYSPLASTIC SYNDROME
     Dosage: 750 MG, DAILY
     Route: 048
     Dates: start: 20110331, end: 20110830
  2. EXJADE [Suspect]
     Indication: IRON OVERLOAD
     Dosage: 500 MG, DAILY
     Route: 048

REACTIONS (5)
  - PNEUMONIA [None]
  - FULL BLOOD COUNT DECREASED [None]
  - CHEST PAIN [None]
  - DYSPNOEA [None]
  - CHILLS [None]
